FAERS Safety Report 15681179 (Version 1)
Quarter: 2018Q4

REPORT INFORMATION
  Report Type: Spontaneous
  Country: US (occurrence: US)
  Receive Date: 20181121
  Receipt Date: 20181121
  Transmission Date: 20190205
  Serious: Yes (Hospitalization)
  Sender: FDA-Public Use
  Company Number: None

PATIENT
  Age: 41 Year
  Weight: 79.1 kg

DRUGS (16)
  1. ONCASPAR [Suspect]
     Active Substance: PEGASPARGASE
     Dates: end: 20180718
  2. ONDANSETRON [Concomitant]
     Active Substance: ONDANSETRON
  3. LORAZEPAM SL [Concomitant]
  4. TINZAPARIN [Concomitant]
     Active Substance: TINZAPARIN
  5. DIMENHYDRINATE. [Concomitant]
     Active Substance: DIMENHYDRINATE
  6. HYDROMORPHONE [Concomitant]
     Active Substance: HYDROMORPHONE
  7. OLAZAPINE [Concomitant]
  8. VALACYCLOVIR [Concomitant]
     Active Substance: VALACYCLOVIR HYDROCHLORIDE
  9. CALCIUM CARBONATE. [Concomitant]
     Active Substance: CALCIUM CARBONATE
  10. LEUPROLIDE [Concomitant]
     Active Substance: LEUPROLIDE
  11. MIDAZOLAM [Concomitant]
     Active Substance: MIDAZOLAM HYDROCHLORIDE
  12. NYSTATIN. [Concomitant]
     Active Substance: NYSTATIN
  13. VORICONAZOLE. [Concomitant]
     Active Substance: VORICONAZOLE
  14. METHOTREXATE. [Suspect]
     Active Substance: METHOTREXATE
     Dates: end: 20180906
  15. PROCHLORPERAZINE. [Concomitant]
     Active Substance: PROCHLORPERAZINE
  16. ZOPICLONE [Concomitant]
     Active Substance: ZOPICLONE

REACTIONS (3)
  - Bronchitis [None]
  - Abdominal pain [None]
  - Candida test positive [None]

NARRATIVE: CASE EVENT DATE: 20180919
